FAERS Safety Report 9686231 (Version 2)
Quarter: 2013Q4

REPORT INFORMATION
  Report Type: Report from Study
  Country: US (occurrence: US)
  Receive Date: 20131113
  Receipt Date: 20131125
  Transmission Date: 20140711
  Serious: Yes (Hospitalization)
  Sender: FDA-Public Use
  Company Number: US-ROCHE-1297075

PATIENT
  Age: 65 Year
  Sex: Female
  Weight: 61.5 kg

DRUGS (4)
  1. VEMURAFENIB [Suspect]
     Indication: MALIGNANT MELANOMA
     Route: 048
     Dates: start: 20130820, end: 20131028
  2. VEMURAFENIB [Suspect]
     Route: 048
     Dates: start: 20131031
  3. GDC-0973 [Suspect]
     Indication: MALIGNANT MELANOMA
     Route: 048
     Dates: start: 20130820, end: 20131028
  4. GDC-0973 [Suspect]
     Route: 048
     Dates: start: 20131031

REACTIONS (1)
  - Gastrointestinal haemorrhage [Not Recovered/Not Resolved]
